FAERS Safety Report 9916218 (Version 3)
Quarter: 2014Q1

REPORT INFORMATION
  Report Type: Spontaneous
  Country: DK (occurrence: DK)
  Receive Date: 20140221
  Receipt Date: 20140317
  Transmission Date: 20141002
  Serious: Yes (Hospitalization, Disabling)
  Sender: FDA-Public Use
  Company Number: DK-GE HEALTHCARE MEDICAL DIAGNOSTICS-OSCN-NO-0204S-0042

PATIENT
  Age: 48 Year
  Sex: Male

DRUGS (10)
  1. OMNISCAN [Suspect]
     Indication: PRODUCT USED FOR UNKNOWN INDICATION
     Route: 042
     Dates: start: 20020103, end: 20020103
  2. OMNISCAN [Suspect]
     Indication: DIAGNOSTIC PROCEDURE
  3. ALFACALCIDOL [Concomitant]
  4. APOZEPAM [Concomitant]
     Dosage: MILLIGRAM(S)
     Route: 048
  5. CORODIL [Concomitant]
     Dosage: 0005 MG D
     Route: 048
  6. ERYTHROPOIETIN [Concomitant]
  7. ETALPHA [Concomitant]
     Dosage: 0002 RG W
     Route: 048
  8. IMOZOP [Concomitant]
     Route: 048
  9. RENAGEL [Concomitant]
     Route: 048
  10. TILKER [Concomitant]
     Dosage: 0200 MG D
     Route: 048

REACTIONS (3)
  - Azotaemia [Not Recovered/Not Resolved]
  - Myalgia [Recovered/Resolved with Sequelae]
  - Nephrogenic systemic fibrosis [Not Recovered/Not Resolved]
